FAERS Safety Report 21441893 (Version 1)
Quarter: 2022Q4

REPORT INFORMATION
  Report Type: Spontaneous
  Country: US (occurrence: US)
  Receive Date: 20221011
  Receipt Date: 20221011
  Transmission Date: 20230113
  Serious: Yes (Other)
  Sender: FDA-Public Use
  Company Number: US-LUNDBECK-DKLU3053359

PATIENT
  Age: 2 Year
  Sex: Male
  Weight: 13.54 kg

DRUGS (1)
  1. SABRIL [Suspect]
     Active Substance: VIGABATRIN
     Indication: Infantile spasms
     Route: 065

REACTIONS (2)
  - Surgery [Unknown]
  - Seizure [Unknown]

NARRATIVE: CASE EVENT DATE: 20220401
